FAERS Safety Report 8154384-1 (Version None)
Quarter: 2012Q1

REPORT INFORMATION
  Report Type: 
  Country: None (occurrence: None)
  Receive Date: 20120103
  Receipt Date: 20111028
  Transmission Date: 20120608
  Serious: No
  Sender: FDA-Public Use
  Company Number: AE-2011-002799

PATIENT
  Age: 51 Year
  Sex: Male
  Weight: 86.637 kg

DRUGS (4)
  1. INCIVEK [Suspect]
     Dosage: 2250 MG (750 MG, 1 IN 8 HR) , ORAL
     Route: 048
     Dates: start: 20110901
  2. PEGASYS [Concomitant]
  3. RIBAVIRIN [Concomitant]
  4. TOPAMAX [Concomitant]

REACTIONS (3)
  - HAEMOGLOBIN ABNORMAL [None]
  - INSOMNIA [None]
  - DIZZINESS [None]
